FAERS Safety Report 13676297 (Version 1)
Quarter: 2017Q2

REPORT INFORMATION
  Report Type: Report from Study
  Country: None (occurrence: DE)
  Receive Date: 20170622
  Receipt Date: 20170622
  Transmission Date: 20170830
  Serious: Yes (Hospitalization)
  Sender: FDA-Public Use
  Company Number: DE-ABBVIE-17K-062-2013925-00

PATIENT
  Age: 62 Year
  Sex: Female

DRUGS (10)
  1. VOCADO [Concomitant]
     Active Substance: AMLODIPINE BESYLATE\OLMESARTAN MEDOXOMIL
     Indication: PRODUCT USED FOR UNKNOWN INDICATION
  2. EUTHYROX [Concomitant]
     Active Substance: LEVOTHYROXINE SODIUM
     Indication: PRODUCT USED FOR UNKNOWN INDICATION
  3. HUMIRA [Suspect]
     Active Substance: ADALIMUMAB
     Indication: RHEUMATOID ARTHRITIS
     Route: 058
     Dates: start: 201310
  4. HUMIRA [Suspect]
     Active Substance: ADALIMUMAB
     Indication: RHEUMATOID ARTHRITIS
     Route: 058
  5. MTX [Concomitant]
     Active Substance: METHOTREXATE SODIUM
     Indication: PRODUCT USED FOR UNKNOWN INDICATION
  6. ASPIRIN. [Concomitant]
     Active Substance: ASPIRIN
     Indication: PRODUCT USED FOR UNKNOWN INDICATION
  7. INDAPAMID [Concomitant]
     Active Substance: INDAPAMIDE
     Indication: PRODUCT USED FOR UNKNOWN INDICATION
  8. ANGELIQ [Concomitant]
     Active Substance: DROSPIRENONE\ESTRADIOL
     Indication: PRODUCT USED FOR UNKNOWN INDICATION
  9. OMELICH [Concomitant]
     Indication: PRODUCT USED FOR UNKNOWN INDICATION
  10. IBUPROFEN. [Concomitant]
     Active Substance: IBUPROFEN
     Indication: PRODUCT USED FOR UNKNOWN INDICATION

REACTIONS (4)
  - Hypoaesthesia [Recovered/Resolved]
  - Speech disorder [Recovered/Resolved]
  - Cerebrovascular accident [Recovered/Resolved]
  - Visual impairment [Recovered/Resolved]

NARRATIVE: CASE EVENT DATE: 201704
